FAERS Safety Report 23817428 (Version 2)
Quarter: 2024Q2

REPORT INFORMATION
  Report Type: Spontaneous
  Country: US (occurrence: US)
  Receive Date: 20240505
  Receipt Date: 20240520
  Transmission Date: 20240716
  Serious: No
  Sender: FDA-Public Use
  Company Number: US-SANOFI-02027035

PATIENT
  Age: 83 Year
  Sex: Female

DRUGS (1)
  1. LANTUS SOLOSTAR [Suspect]
     Active Substance: INSULIN GLARGINE
     Indication: Type 2 diabetes mellitus
     Dosage: 10 UNITS AM/ 7 UNITS PM BID AND DRUG TREATMENT DURATION:AT LEAST 10 YEARS
     Dates: start: 2014

REACTIONS (2)
  - Inappropriate schedule of product administration [Unknown]
  - Injury associated with device [Unknown]
